FAERS Safety Report 24918334 (Version 1)
Quarter: 2025Q1

REPORT INFORMATION
  Report Type: Spontaneous
  Country: US (occurrence: US)
  Receive Date: 20250203
  Receipt Date: 20250203
  Transmission Date: 20250409
  Serious: No
  Sender: PFIZER
  Company Number: US-PFIZER INC-202500021684

PATIENT
  Age: 49 Year
  Sex: Female

DRUGS (3)
  1. LITFULO [Suspect]
     Active Substance: RITLECITINIB TOSYLATE
     Dosage: 50 MG (ONE CAPSULE), DAILY
     Route: 048
     Dates: start: 20240430
  2. MINOXIDIL [Concomitant]
     Active Substance: MINOXIDIL
  3. SERTRALINE [Concomitant]
     Active Substance: SERTRALINE HYDROCHLORIDE

REACTIONS (2)
  - Drug ineffective [Not Recovered/Not Resolved]
  - Product dose omission issue [Unknown]
